FAERS Safety Report 8403025-4 (Version None)
Quarter: 2012Q2

REPORT INFORMATION
  Report Type: 
  Country: None (occurrence: None)
  Receive Date: 20120601
  Receipt Date: 20120522
  Transmission Date: 20120825
  Serious: Yes (Life-Threatening, Hospitalization)
  Sender: FDA-Public Use
  Company Number: US-ELI_LILLY_AND_COMPANY-US201104001999

PATIENT
  Sex: Female

DRUGS (14)
  1. LOVASTATIN [Concomitant]
     Dosage: 20 MG, QD
  2. VITAMIN D [Concomitant]
     Dosage: UNK, QD
  3. PROBIOTICS NOS [Concomitant]
     Dosage: UNK, QD
  4. GABAPENTIN [Concomitant]
     Dosage: 300 MG, TID
  5. FORTEO [Suspect]
     Dosage: 20 UG, QD
     Route: 058
  6. DICYCLOMINE [Concomitant]
     Dosage: 10 MG, BID
  7. FORTEO [Suspect]
     Indication: OSTEOPOROSIS
     Dosage: 20 UG, QD
     Route: 058
  8. FORTEO [Suspect]
     Dosage: 20 UG, QD
     Route: 058
  9. ALPRAZOLAM [Concomitant]
     Dosage: 1 MG, TID
  10. BUPROPION HCL [Concomitant]
     Dosage: 100 MG, BID
  11. OXYCODONE HYDROCHLORIDE [Concomitant]
     Dosage: 15 MG, EVERY 6 HRS
  12. VITAMIN C [Concomitant]
     Dosage: UNK, BID
  13. LISINOPRIL [Concomitant]
     Dosage: 20 MG, QD
  14. AMLODIPINE [Concomitant]
     Dosage: 10 MG, QD

REACTIONS (16)
  - COLITIS [None]
  - MALAISE [None]
  - INFLUENZA LIKE ILLNESS [None]
  - AORTIC ANEURYSM [None]
  - BACK PAIN [None]
  - PAIN [None]
  - WEIGHT INCREASED [None]
  - COLD SWEAT [None]
  - EXERCISE TOLERANCE DECREASED [None]
  - INJECTION SITE PAIN [None]
  - DEPRESSED LEVEL OF CONSCIOUSNESS [None]
  - ARTHRALGIA [None]
  - POST PROCEDURAL COMPLICATION [None]
  - HYPERVENTILATION [None]
  - PALPITATIONS [None]
  - BONE PAIN [None]
